FAERS Safety Report 7379838-7 (Version None)
Quarter: 2011Q1

REPORT INFORMATION
  Report Type: 
  Country: None (occurrence: None)
  Receive Date: 20110329
  Receipt Date: 20110318
  Transmission Date: 20110831
  Serious: Yes (Death, Life-Threatening, Other)
  Sender: FDA-Public Use
  Company Number: JP-AMGEN-JPNCT2011011670

PATIENT
  Age: 65 Year
  Sex: Female
  Weight: 42 kg

DRUGS (14)
  1. ELPLAT [Suspect]
     Indication: COLORECTAL CANCER
     Route: 041
     Dates: start: 20100921, end: 20100923
  2. FLUOROURACIL [Suspect]
     Route: 041
     Dates: start: 20100921, end: 20100923
  3. TAKEPRON [Concomitant]
     Dosage: UNK
     Route: 048
  4. MAGNESIUM OXIDE [Concomitant]
     Dosage: UNK
     Route: 048
  5. CORTICOSTEROIDS [Concomitant]
     Indication: PROPHYLAXIS
     Dosage: UNK
     Route: 065
  6. LASIX [Concomitant]
     Dosage: UNK
     Route: 048
  7. DAI-KENCHU-TO [Concomitant]
     Route: 048
  8. MUCOSTA [Concomitant]
     Dosage: UNK
     Route: 048
  9. PANITUMUMAB [Suspect]
     Indication: COLORECTAL CANCER METASTATIC
     Dosage: 6 MG/KG, Q2WK
     Route: 041
     Dates: start: 20100921, end: 20100921
  10. DUROTEP [Concomitant]
     Dosage: UNK
     Route: 062
  11. DAIKENTYUTO [Concomitant]
     Route: 048
  12. CALCIUM LEVOFOLINATE [Concomitant]
     Indication: COLORECTAL CANCER
     Route: 041
     Dates: start: 20100921, end: 20100923
  13. FLUOROURACIL [Suspect]
     Indication: COLORECTAL CANCER
     Route: 040
     Dates: start: 20100921, end: 20100923
  14. PREDONINE [Concomitant]
     Route: 048

REACTIONS (4)
  - ANAEMIA [None]
  - PLATELET COUNT DECREASED [None]
  - COLORECTAL CANCER [None]
  - WHITE BLOOD CELL COUNT DECREASED [None]
